FAERS Safety Report 7743311-4 (Version None)
Quarter: 2011Q3

REPORT INFORMATION
  Report Type: 
  Country: None (occurrence: None)
  Receive Date: 20110906
  Receipt Date: 20110830
  Transmission Date: 20111222
  Serious: Yes (Hospitalization)
  Sender: FDA-Public Use
  Company Number: DSA_47519_2011

PATIENT
  Age: 76 Year
  Sex: Female
  Weight: 85.7298 kg

DRUGS (5)
  1. TOPROL-XL [Concomitant]
  2. SYNTHROID [Concomitant]
  3. WELLBUTRIN XL [Suspect]
     Indication: DEPRESSION
     Dosage: (150 MG QD ORAL)
     Route: 048
     Dates: start: 20110823
  4. INHALERS [Concomitant]
  5. CYMBALTA [Concomitant]

REACTIONS (9)
  - DIZZINESS [None]
  - HOT FLUSH [None]
  - DRY MOUTH [None]
  - NAUSEA [None]
  - TREMOR [None]
  - ASTHMA [None]
  - ECONOMIC PROBLEM [None]
  - INSOMNIA [None]
  - WRONG TECHNIQUE IN DRUG USAGE PROCESS [None]
